FAERS Safety Report 17138223 (Version 1)
Quarter: 2019Q4

REPORT INFORMATION
  Report Type: Spontaneous
  Country: US (occurrence: US)
  Receive Date: 20191119
  Receipt Date: 20191119
  Transmission Date: 20200122
  Serious: No
  Sender: FDA-Public Use
  Company Number: None

PATIENT
  Age: 76 Year
  Sex: Male
  Weight: 114.76 kg

DRUGS (1)
  1. LENALIDOMIDE (CC-5013) (703813) [Suspect]
     Active Substance: LENALIDOMIDE
     Dates: end: 20180723

REACTIONS (1)
  - Lung adenocarcinoma [None]

NARRATIVE: CASE EVENT DATE: 20180727
